FAERS Safety Report 14301067 (Version 2)
Quarter: 2017Q4

REPORT INFORMATION
  Report Type: Spontaneous
  Country: CH (occurrence: CH)
  Receive Date: 20171219
  Receipt Date: 20171221
  Transmission Date: 20180321
  Serious: Yes (Death, Hospitalization)
  Sender: FDA-Public Use
  Company Number: CH-JNJFOC-20171220044

PATIENT
  Age: 88 Year
  Sex: Male

DRUGS (12)
  1. MARCOUMAR [Concomitant]
     Active Substance: PHENPROCOUMON
     Route: 048
  2. LAXOBERON [Concomitant]
     Active Substance: SODIUM PICOSULFATE
     Route: 065
  3. FLURAZEPAM [Suspect]
     Active Substance: FLURAZEPAM\FLURAZEPAM HYDROCHLORIDE
     Indication: PRODUCT USED FOR UNKNOWN INDICATION
     Route: 048
  4. NOVALGIN [Concomitant]
     Active Substance: METAMIZOLE SODIUM
     Route: 048
  5. METOPROLOL SUCCINATE. [Concomitant]
     Active Substance: METOPROLOL SUCCINATE
     Route: 048
  6. PANTOZOL [Concomitant]
     Active Substance: PANTOPRAZOLE SODIUM
     Route: 048
  7. TOREM [Concomitant]
     Active Substance: TORSEMIDE
     Route: 048
  8. VI-DE 3 [Concomitant]
     Active Substance: CHOLECALCIFEROL
     Route: 048
  9. DUROGESIC [Suspect]
     Active Substance: FENTANYL
     Indication: PRODUCT USED FOR UNKNOWN INDICATION
     Route: 062
  10. SPASMO-URGENIN NEO [Concomitant]
     Active Substance: TROSPIUM
     Route: 048
  11. VISMED [Concomitant]
     Active Substance: HYALURONATE SODIUM
     Route: 047
  12. TEMESTA (LORAZEPAM) [Suspect]
     Active Substance: LORAZEPAM
     Indication: PRODUCT USED FOR UNKNOWN INDICATION
     Route: 048

REACTIONS (5)
  - Pneumonia [Fatal]
  - Fall [Fatal]
  - Wrong technique in product usage process [Unknown]
  - Femoral neck fracture [Fatal]
  - Off label use [Unknown]

NARRATIVE: CASE EVENT DATE: 20171023
